FAERS Safety Report 24774206 (Version 1)
Quarter: 2024Q4

REPORT INFORMATION
  Report Type: Spontaneous
  Country: DE (occurrence: EU)
  Receive Date: 20241225
  Receipt Date: 20241225
  Transmission Date: 20250115
  Serious: Yes (Other)
  Sender: ASCENDIS PHARMA
  Company Number: DE-ASCENDIS PHARMA-2024EU005472

PATIENT

DRUGS (27)
  1. YORVIPATH [Suspect]
     Active Substance: PALOPEGTERIPARATIDE
     Indication: Hypoparathyroidism
     Dosage: 18 MICROGRAM, QD
     Route: 058
     Dates: start: 20240329
  2. YORVIPATH [Suspect]
     Active Substance: PALOPEGTERIPARATIDE
     Dosage: 21 MICROGRAM, QD
     Route: 058
  3. YORVIPATH [Suspect]
     Active Substance: PALOPEGTERIPARATIDE
     Dosage: 24 MICROGRAM, QD
     Route: 058
  4. YORVIPATH [Suspect]
     Active Substance: PALOPEGTERIPARATIDE
     Dosage: 27 MICROGRAM, QD
     Route: 058
     Dates: start: 20240422
  5. YORVIPATH [Suspect]
     Active Substance: PALOPEGTERIPARATIDE
     Dosage: 30 MICROGRAM, QD
     Route: 058
  6. YORVIPATH [Suspect]
     Active Substance: PALOPEGTERIPARATIDE
     Dosage: 33 MICROGRAM, QD
     Route: 058
  7. YORVIPATH [Suspect]
     Active Substance: PALOPEGTERIPARATIDE
     Dosage: 43 MICROGRAM, QD
     Route: 058
     Dates: start: 20240805
  8. YORVIPATH [Suspect]
     Active Substance: PALOPEGTERIPARATIDE
     Dosage: 51 MICROGRAM, QD
     Route: 058
  9. YORVIPATH [Suspect]
     Active Substance: PALOPEGTERIPARATIDE
     Dosage: 48 MICROGRAM, QD
     Route: 058
  10. YORVIPATH [Suspect]
     Active Substance: PALOPEGTERIPARATIDE
     Dosage: 45 MICROGRAM, QD
     Route: 058
  11. METHOTREXATE SODIUM [Concomitant]
     Active Substance: METHOTREXATE SODIUM
     Indication: Rheumatoid arthritis
     Dosage: 15 MILLIGRAM, WEEKLY
     Route: 058
  12. RITUXIMAB [Concomitant]
     Active Substance: RITUXIMAB
     Indication: Rheumatoid arthritis
     Dosage: 500 MILLIGRAM, BID, WITHIN 2 WEEKS
     Route: 042
     Dates: start: 202402
  13. VITAMIN D3 [Concomitant]
     Active Substance: CHOLECALCIFEROL
     Indication: Product used for unknown indication
     Dosage: 20000 INTERNATIONAL UNIT, WEEKLY
  14. CALCITRIOL [Concomitant]
     Active Substance: CALCITRIOL
     Indication: Product used for unknown indication
     Dosage: 0.25 MICROGRAM, QD
  15. MAGNESIUM [Concomitant]
     Active Substance: MAGNESIUM
     Indication: Product used for unknown indication
     Dosage: 300 MILLIGRAM, QD
  16. CALCIUM [Concomitant]
     Active Substance: CALCIUM
     Indication: Product used for unknown indication
     Dosage: 500 MILLIGRAM, QD
  17. LEVOTHYROXINE [Concomitant]
     Active Substance: LEVOTHYROXINE
     Indication: Product used for unknown indication
     Dosage: 225 MICROGRAM, QD
  18. RAMIPRIL [Concomitant]
     Active Substance: RAMIPRIL
     Indication: Product used for unknown indication
     Dosage: 10 MILLIGRAM, QD
  19. SPIRONOLACTONE [Concomitant]
     Active Substance: SPIRONOLACTONE
     Indication: Product used for unknown indication
     Dosage: 50 MILLIGRAM, QD
  20. XIPAMIDE [Concomitant]
     Active Substance: XIPAMIDE
     Indication: Product used for unknown indication
     Dosage: 10 MILLIGRAM, QD
  21. FOLIC ACID [Concomitant]
     Active Substance: FOLIC ACID
     Indication: Product used for unknown indication
     Dosage: 5 MILLIGRAM, ONE DAY AFTER MTX ADMINISTRATION
  22. CARBAMAZEPINE [Concomitant]
     Active Substance: CARBAMAZEPINE
     Indication: Product used for unknown indication
     Dosage: 300 MILLIGRAM, BID
  23. OMEPRAZOLE [Concomitant]
     Active Substance: OMEPRAZOLE
     Indication: Product used for unknown indication
     Dosage: 20 MILLIGRAM, PRN
  24. TILIDINE [Concomitant]
     Active Substance: TILIDINE
     Indication: Product used for unknown indication
     Dosage: 10 MILLIGRAM, QD
  25. FORMOTEROL [Concomitant]
     Active Substance: FORMOTEROL
     Indication: Product used for unknown indication
  26. BECLOMETHASONE [Concomitant]
     Active Substance: BECLOMETHASONE
     Indication: Product used for unknown indication
  27. ALBUTEROL [Concomitant]
     Active Substance: ALBUTEROL
     Indication: Product used for unknown indication

REACTIONS (20)
  - Angina pectoris [Unknown]
  - Rash [Unknown]
  - Cardiovascular disorder [Unknown]
  - Urine output increased [Unknown]
  - Calcium deficiency [Unknown]
  - Malaise [Unknown]
  - Fatigue [Unknown]
  - Mental status changes [Unknown]
  - Pruritus [Unknown]
  - Chapped lips [Unknown]
  - Abdominal pain [Unknown]
  - Paraesthesia [Unknown]
  - Hypoaesthesia [Unknown]
  - Mastication disorder [Unknown]
  - Arthralgia [Unknown]
  - Palpitations [Unknown]
  - Chest pain [Unknown]
  - Extrasystoles [Unknown]
  - Headache [Recovering/Resolving]
  - Muscle spasms [Recovering/Resolving]
